FAERS Safety Report 4424243-6 (Version None)
Quarter: 2004Q3

REPORT INFORMATION
  Report Type: 
  Country: None (occurrence: None)
  Receive Date: 20040809
  Receipt Date: 20040624
  Transmission Date: 20050211
  Serious: Yes (Life-Threatening)
  Sender: FDA-Public Use
  Company Number: M2004.0748

PATIENT
  Age: 65 Year
  Sex: Female
  Weight: 67 kg

DRUGS (11)
  1. RIMACTANE [Suspect]
     Indication: LYMPH NODE TUBERCULOSIS
     Dosage: 450 MG QD
     Dates: start: 20030227, end: 20031118
  2. ISONIAZID [Suspect]
     Indication: LYMPH NODE TUBERCULOSIS
     Dosage: 300 MG QD
     Dates: start: 20030227, end: 20031118
  3. STREPTOMYCIN SULFATE [Suspect]
     Indication: LYMPH NODE TUBERCULOSIS
     Dosage: 0.5 G QW2
     Dates: start: 20030227, end: 20031118
  4. CLONAZEPAM [Concomitant]
  5. PAROXETINE HCL [Concomitant]
  6. QUINAPRIL HYDROCHLORIDE [Concomitant]
  7. NORVASC [Concomitant]
  8. DOXAZOSIN MESYLATE [Concomitant]
  9. BLOPRESS (CANDESARTAN CILEXETIL) [Concomitant]
  10. EPEDEL (ETHYL ICOSAPENTATE) [Concomitant]
  11. ANPLAG (SARPOGRELATE HYDROCHLORIDE) [Concomitant]

REACTIONS (7)
  - ATHEROSCLEROSIS OBLITERANS [None]
  - CEREBRAL INFARCTION [None]
  - CONVULSION [None]
  - DEPRESSED LEVEL OF CONSCIOUSNESS [None]
  - DIABETIC NEPHROPATHY [None]
  - HEMIPLEGIA [None]
  - HYPERLIPIDAEMIA [None]
